FAERS Safety Report 4447912-0 (Version None)
Quarter: 2004Q3

REPORT INFORMATION
  Report Type: 
  Country: None (occurrence: None)
  Receive Date: 20040802
  Receipt Date: 20040408
  Transmission Date: 20050211
  Serious: No
  Sender: FDA-Public Use
  Company Number: 2004-114997-NL

PATIENT
  Age: 32 Year
  Sex: Male
  Weight: 90.9 kg

DRUGS (1)
  1. NUVARING [Suspect]
     Indication: ACCIDENTAL EXPOSURE

REACTIONS (2)
  - GENITAL ERYTHEMA [None]
  - PENILE SWELLING [None]
